FAERS Safety Report 8140923-3 (Version None)
Quarter: 2012Q1

REPORT INFORMATION
  Report Type: 
  Country: None (occurrence: None)
  Receive Date: 20120216
  Receipt Date: 20120208
  Transmission Date: 20120608
  Serious: Yes (Other)
  Sender: FDA-Public Use
  Company Number: US-AMGEN-USASP2012008573

PATIENT
  Age: 48 Year
  Sex: Female

DRUGS (2)
  1. SENSIPAR [Suspect]
     Indication: HYPERPARATHYROIDISM SECONDARY
     Dosage: 60 MG, QD
     Dates: start: 20080101, end: 20120201
  2. SENSIPAR [Suspect]
     Dosage: 30 MG, QD
     Dates: start: 20120201

REACTIONS (2)
  - BLOOD CALCIUM ABNORMAL [None]
  - BLOOD PARATHYROID HORMONE DECREASED [None]
